FAERS Safety Report 25621784 (Version 2)
Quarter: 2025Q3

REPORT INFORMATION
  Report Type: Other
  Country: US (occurrence: US)
  Receive Date: 20250730
  Receipt Date: 20250912
  Transmission Date: 20251021
  Serious: No
  Sender: NANJING KING-FRIEND BIOCHEMICAL PHARMACEUTICAL
  Company Number: US-NKFPHARMA-2025MPSPO00231

PATIENT
  Age: 57 Year
  Sex: Female
  Weight: 61 kg

DRUGS (4)
  1. HEPARIN SODIUM [Suspect]
     Active Substance: HEPARIN SODIUM
     Indication: Atrial fibrillation
     Route: 042
     Dates: start: 20250521
  2. HEPARIN SODIUM [Suspect]
     Active Substance: HEPARIN SODIUM
     Indication: Atrial flutter
     Route: 042
     Dates: start: 20250521
  3. HEPARIN SODIUM [Suspect]
     Active Substance: HEPARIN SODIUM
     Route: 042
     Dates: start: 20250521
  4. HEPARIN SODIUM [Suspect]
     Active Substance: HEPARIN SODIUM
     Route: 042
     Dates: start: 20250521, end: 20250521

REACTIONS (3)
  - Prothrombin time prolonged [Unknown]
  - Drug effect less than expected [Unknown]
  - Product measured potency issue [Unknown]

NARRATIVE: CASE EVENT DATE: 20250521
